FAERS Safety Report 5456135-8 (Version None)
Quarter: 2007Q3

REPORT INFORMATION
  Report Type: 
  Country: None (occurrence: None)
  Receive Date: 20070918
  Receipt Date: 20070904
  Transmission Date: 20080115
  Serious: Yes (Death)
  Sender: FDA-Public Use
  Company Number: DK-KINGPHARMUSA00001-K200701131

PATIENT

DRUGS (2)
  1. EPIPEN [Suspect]
     Indication: ARTHROPOD STING
     Dosage: .3 MG, PRN
     Route: 030
     Dates: start: 20070826, end: 20070826
  2. ADRENALIN                          /00003901/ [Suspect]
     Indication: ARTHROPOD STING
     Route: 042
     Dates: start: 20070826, end: 20070826

REACTIONS (3)
  - CARDIAC ARREST [None]
  - DRUG INEFFECTIVE [None]
  - PULSE ABSENT [None]
